FAERS Safety Report 11618023 (Version 5)
Quarter: 2018Q1

REPORT INFORMATION
  Report Type: Report from Study
  Country: US (occurrence: US)
  Receive Date: 20151010
  Receipt Date: 20180308
  Transmission Date: 20180508
  Serious: No
  Sender: FDA-Public Use
  Company Number: PHEH2015US019433

PATIENT
  Sex: Male

DRUGS (3)
  1. ENTRESTO [Suspect]
     Active Substance: SACUBITRIL\VALSARTAN
     Dosage: UNK (MIDDLE DOSE)
     Route: 048
  2. ENTRESTO [Suspect]
     Active Substance: SACUBITRIL\VALSARTAN
     Dosage: 50 MG (24/26 MG), BID
     Route: 048
  3. ENTRESTO [Suspect]
     Active Substance: SACUBITRIL\VALSARTAN
     Indication: CARDIAC FAILURE
     Dosage: 50 MG (24/26 MG), BID
     Route: 048
     Dates: start: 20150825

REACTIONS (17)
  - Weight decreased [Unknown]
  - Somnolence [Not Recovered/Not Resolved]
  - Fatigue [Unknown]
  - Cough [Unknown]
  - Blood pressure decreased [Recovering/Resolving]
  - Dry mouth [Unknown]
  - Asthenia [Not Recovered/Not Resolved]
  - Pollakiuria [Unknown]
  - Alopecia [Unknown]
  - Blood glucose increased [Unknown]
  - Hypertonic bladder [Unknown]
  - Vascular occlusion [Not Recovered/Not Resolved]
  - Low density lipoprotein decreased [Unknown]
  - Blood glucose decreased [Recovered/Resolved]
  - Dizziness postural [Unknown]
  - Hypotension [Unknown]
  - Ejection fraction decreased [Not Recovered/Not Resolved]

NARRATIVE: CASE EVENT DATE: 20170319
